FAERS Safety Report 16446483 (Version 3)
Quarter: 2019Q4

REPORT INFORMATION
  Report Type: Spontaneous
  Country: JP (occurrence: JP)
  Receive Date: 20190618
  Receipt Date: 20191009
  Transmission Date: 20200122
  Serious: Yes (Hospitalization, Other)
  Sender: FDA-Public Use
  Company Number: JP-009507513-1906JPN001315J

PATIENT
  Age: 78 Year
  Sex: Female

DRUGS (4)
  1. CARBOPLATIN. [Concomitant]
     Active Substance: CARBOPLATIN
     Indication: NON-SMALL CELL LUNG CANCER
     Dosage: UNK
     Route: 065
     Dates: end: 20190524
  2. PEMETREXED DISODIUM [Concomitant]
     Active Substance: PEMETREXED DISODIUM
     Indication: NON-SMALL CELL LUNG CANCER
     Dosage: UNK
     Route: 065
     Dates: end: 20190524
  3. KEYTRUDA [Suspect]
     Active Substance: PEMBROLIZUMAB
     Indication: NON-SMALL CELL LUNG CANCER
     Dosage: 200 MILLIGRAM, Q3W
     Route: 041
     Dates: start: 20190524, end: 20190524
  4. ELIQUIS [Concomitant]
     Active Substance: APIXABAN
     Indication: VARICOSE VEIN
     Dosage: UNK
     Route: 048
     Dates: end: 20190920

REACTIONS (3)
  - Cerebral infarction [Not Recovered/Not Resolved]
  - Platelet count decreased [Recovered/Resolved]
  - Lymphangioma [Recovering/Resolving]

NARRATIVE: CASE EVENT DATE: 20190607
